FAERS Safety Report 12413498 (Version 14)
Quarter: 2021Q4

REPORT INFORMATION
  Report Type: Spontaneous
  Country: JP (occurrence: JP)
  Receive Date: 20160527
  Receipt Date: 20211014
  Transmission Date: 20220303
  Serious: Yes (Death, Life-Threatening, Hospitalization, Other)
  Sender: FDA-Public Use
  Company Number: JP-BRISTOL-MYERS SQUIBB COMPANY-BMS-2016-041102

PATIENT
  Age: 60 Year
  Sex: Male
  Weight: 59 kg

DRUGS (3)
  1. OPDIVO [Suspect]
     Active Substance: NIVOLUMAB
     Indication: Non-small cell lung cancer
     Dosage: 177 MG, UNK
     Route: 041
     Dates: start: 201604, end: 20160419
  2. OPDIVO [Suspect]
     Active Substance: NIVOLUMAB
     Dosage: UNK
     Route: 041
     Dates: start: 201605, end: 201605
  3. OXYCONTIN [Concomitant]
     Active Substance: OXYCODONE HYDROCHLORIDE
     Indication: Product used for unknown indication
     Dosage: UNK
     Route: 065
     Dates: start: 20160411

REACTIONS (12)
  - Cardiac failure [Fatal]
  - Hepatic failure [Fatal]
  - Renal failure [Fatal]
  - Myocarditis [Fatal]
  - Atrioventricular block complete [Not Recovered/Not Resolved]
  - Dysphagia [Not Recovered/Not Resolved]
  - Myositis [Not Recovered/Not Resolved]
  - Ventricular tachycardia [Recovered/Resolved]
  - Cardiac pacemaker insertion [Unknown]
  - Cytokine storm [Not Recovered/Not Resolved]
  - Dizziness [Unknown]
  - Nausea [Unknown]

NARRATIVE: CASE EVENT DATE: 20160401
